FAERS Safety Report 18527556 (Version 1)
Quarter: 2020Q4

REPORT INFORMATION
  Report Type: Spontaneous
  Country: FR (occurrence: FR)
  Receive Date: 20201120
  Receipt Date: 20201120
  Transmission Date: 20210114
  Serious: Yes (Death, Hospitalization)
  Sender: FDA-Public Use
  Company Number: FR-MYLANLABS-2020M1095732

PATIENT
  Age: 82 Year
  Sex: Male

DRUGS (5)
  1. CEFTRIAXONE. [Suspect]
     Active Substance: CEFTRIAXONE
     Indication: PNEUMOCOCCAL SEPSIS
  2. NOREPINEPHRINE. [Suspect]
     Active Substance: NOREPINEPHRINE
     Indication: PRODUCT USED FOR UNKNOWN INDICATION
     Route: 065
  3. CEFTRIAXONE. [Suspect]
     Active Substance: CEFTRIAXONE
     Indication: SEPTIC SHOCK
  4. CEFTRIAXONE. [Suspect]
     Active Substance: CEFTRIAXONE
     Indication: PNEUMONIA
     Route: 065
  5. CEFTRIAXONE. [Suspect]
     Active Substance: CEFTRIAXONE
     Indication: MENINGOCOCCAL INFECTION

REACTIONS (10)
  - Haemodynamic instability [Fatal]
  - Hyperfibrinogenaemia [Fatal]
  - Drug ineffective [Fatal]
  - Skin disorder [Fatal]
  - Autoimmune haemolytic anaemia [Fatal]
  - Acute kidney injury [Fatal]
  - Nervous system disorder [Fatal]
  - Lactic acidosis [Fatal]
  - Angiopathy [Fatal]
  - Multiple organ dysfunction syndrome [Fatal]
